FAERS Safety Report 16297749 (Version 1)
Quarter: 2019Q2

REPORT INFORMATION
  Report Type: Report from Study
  Country: FI (occurrence: FI)
  Receive Date: 20190510
  Receipt Date: 20190510
  Transmission Date: 20190711
  Serious: Yes (Death)
  Sender: FDA-Public Use
  Company Number: FI-TEVA-2019-FI-1046672

PATIENT
  Age: 76 Year
  Sex: Female

DRUGS (9)
  1. CITALOPRAM [Suspect]
     Active Substance: CITALOPRAM HYDROBROMIDE
     Route: 065
  2. DEXTROPROPOXYPHENE [Concomitant]
     Active Substance: PROPOXYPHENE HYDROCHLORIDE
  3. VERAPAMIL [Interacting]
     Active Substance: VERAPAMIL HYDROCHLORIDE
     Route: 065
  4. TEMAZEPAM. [Concomitant]
     Active Substance: TEMAZEPAM
  5. MIANSERIN [Concomitant]
     Active Substance: MIANSERIN
  6. OXAZEPAM. [Concomitant]
     Active Substance: OXAZEPAM
  7. DESMETHYLDIAZEPAM [Concomitant]
     Active Substance: NORDAZEPAM
  8. DIGOXIN. [Interacting]
     Active Substance: DIGOXIN
     Route: 065
  9. DEXTROMETORPHAN [Concomitant]
     Active Substance: DEXTROMETHORPHAN

REACTIONS (3)
  - Completed suicide [Fatal]
  - Drug interaction [Fatal]
  - Drug ineffective [Fatal]
